FAERS Safety Report 7737546-4 (Version None)
Quarter: 2011Q3

REPORT INFORMATION
  Report Type: 
  Country: None (occurrence: None)
  Receive Date: 20110908
  Receipt Date: 20110827
  Transmission Date: 20111222
  Serious: Yes (Other)
  Sender: FDA-Public Use
  Company Number: IR-GENENTECH-323741

PATIENT
  Age: 35 Year
  Sex: Male

DRUGS (2)
  1. MABTHERA [Suspect]
     Dosage: UNK
     Route: 042
  2. MABTHERA [Suspect]
     Indication: RHEUMATOID ARTHRITIS
     Dosage: UNK
     Route: 042
     Dates: start: 20110701, end: 20110701

REACTIONS (2)
  - RHEUMATOID ARTHRITIS [None]
  - URINARY TRACT INFECTION [None]
